FAERS Safety Report 6228796-7 (Version None)
Quarter: 2009Q2

REPORT INFORMATION
  Report Type: 
  Country: None (occurrence: None)
  Receive Date: 20090611
  Receipt Date: 20090611
  Transmission Date: 20091009
  Serious: Yes (Other)
  Sender: FDA-Public Use
  Company Number: None

PATIENT
  Sex: Male

DRUGS (1)
  1. LEVETIRACETAM [Suspect]
     Indication: EPILEPSY
     Dosage: 750MG 1 TAB QAM PO; 750MG 2 TABS PM PO
     Route: 048
     Dates: start: 20081109, end: 20081210

REACTIONS (1)
  - CONVULSION [None]
